FAERS Safety Report 6053021-X (Version None)
Quarter: 2009Q1

REPORT INFORMATION
  Report Type: 
  Country: None (occurrence: None)
  Receive Date: 20090127
  Receipt Date: 20090116
  Transmission Date: 20090719
  Serious: Yes (Life-Threatening, Hospitalization)
  Sender: FDA-Public Use
  Company Number: FR-JNJFOC-20090103875

PATIENT
  Age: 55 Year
  Sex: Male
  Weight: 106 kg

DRUGS (6)
  1. REMICADE [Suspect]
     Route: 042
  2. REMICADE [Suspect]
     Route: 042
  3. REMICADE [Suspect]
     Indication: ANKYLOSING SPONDYLITIS
     Route: 042
  4. REMICADE [Suspect]
     Indication: COLITIS ULCERATIVE
     Route: 042
  5. DIAMICRON [Concomitant]
     Dosage: TAKEN ^FOR 1 YEAR^
  6. BETAHISTINE [Concomitant]

REACTIONS (10)
  - BACK PAIN [None]
  - BLOOD PRESSURE INCREASED [None]
  - BRONCHOSPASM [None]
  - DYSPNOEA [None]
  - HEADACHE [None]
  - HYPERSENSITIVITY [None]
  - INFUSION RELATED REACTION [None]
  - LIVEDO RETICULARIS [None]
  - RASH [None]
  - TACHYCARDIA [None]
